FAERS Safety Report 4470539-1 (Version None)
Quarter: 2004Q4

REPORT INFORMATION
  Report Type: 
  Country: None (occurrence: None)
  Receive Date: 20041001
  Receipt Date: 20040920
  Transmission Date: 20050328
  Serious: Yes (Hospitalization)
  Sender: FDA-Public Use
  Company Number: CIP04001830

PATIENT
  Age: 73 Year
  Sex: Female

DRUGS (4)
  1. FURADANTIN [Suspect]
     Indication: PYELONEPHRITIS
     Dosage: EVERY 2 DAYS
     Route: 048
     Dates: start: 20030601, end: 20031215
  2. FURADANTIN [Suspect]
     Indication: PYELONEPHRITIS
     Dosage: EVERY 2 DAYS
     Route: 048
     Dates: start: 20040601, end: 20040715
  3. PRETERAX (INDAPAMIDE,PERINDOPRIL ERBUMINE) [Suspect]
     Indication: HYPERTENSION
     Dosage: 1 TABLET DAILY
     Dates: start: 20030601, end: 20031215
  4. NOOTROPYL (PIRACETAM) [Suspect]
     Indication: VERTIGO
     Dosage: 800 3TIMES DAILY, ORAL
     Route: 048
     Dates: start: 20000701

REACTIONS (4)
  - CYCLITIS [None]
  - HYPERTONIA [None]
  - HYPHAEMA [None]
  - IRIDOCYCLITIS [None]
